FAERS Safety Report 8392556-1 (Version None)
Quarter: 2012Q2

REPORT INFORMATION
  Report Type: 
  Country: None (occurrence: None)
  Receive Date: 20120529
  Receipt Date: 20120522
  Transmission Date: 20120825
  Serious: Yes (Death, Hospitalization)
  Sender: FDA-Public Use
  Company Number: FR-MERCK-1112FRA00098

PATIENT
  Age: 65 Year
  Sex: Male
  Weight: 108 kg

DRUGS (10)
  1. JANUVIA [Suspect]
     Route: 048
     Dates: start: 20110527
  2. GLIMEPIRIDE [Concomitant]
     Route: 048
     Dates: start: 20100101, end: 20110526
  3. JANUMET [Concomitant]
     Indication: TYPE 2 DIABETES MELLITUS
     Route: 048
     Dates: start: 20101228, end: 20110526
  4. JANUVIA [Suspect]
     Indication: TYPE 2 DIABETES MELLITUS
     Route: 048
     Dates: start: 20100219, end: 20101227
  5. METFORMIN [Concomitant]
     Indication: TYPE 2 DIABETES MELLITUS
     Route: 048
     Dates: end: 20101227
  6. GLIMEPIRIDE [Concomitant]
     Indication: TYPE 2 DIABETES MELLITUS
     Route: 048
     Dates: end: 20100101
  7. INSULIN GLARGINE [Concomitant]
     Route: 065
     Dates: start: 20110527, end: 20110101
  8. INSULIN GLARGINE [Concomitant]
     Route: 065
     Dates: start: 20110101
  9. GLICLAZIDE [Concomitant]
     Indication: TYPE 2 DIABETES MELLITUS
     Route: 048
     Dates: start: 20110527
  10. INSULIN GLARGINE [Concomitant]
     Indication: TYPE 2 DIABETES MELLITUS
     Route: 065
     Dates: start: 20110318, end: 20110526

REACTIONS (3)
  - PULMONARY FIBROSIS [None]
  - CARDIAC FAILURE [None]
  - ACUTE PULMONARY OEDEMA [None]
